FAERS Safety Report 24389693 (Version 2)
Quarter: 2024Q4

REPORT INFORMATION
  Report Type: Report from Study
  Country: US (occurrence: US)
  Receive Date: 20241003
  Receipt Date: 20241029
  Transmission Date: 20250114
  Serious: Yes (Other)
  Sender: AMGEN
  Company Number: US-AMGEN-USASL2024190703

PATIENT
  Age: 69 Year
  Sex: Female

DRUGS (12)
  1. TEPEZZA [Suspect]
     Active Substance: TEPROTUMUMAB-TRBW
     Indication: Toxic goitre
     Dosage: 10 MILLIGRAM/KILOGRAM, FIRST DOSE (FIRST COURSE)
     Route: 065
     Dates: start: 20230620
  2. TEPEZZA [Suspect]
     Active Substance: TEPROTUMUMAB-TRBW
     Dosage: 20 MILLIGRAM/KILOGRAM, Q3WK, DOSES 2-8 (FIRST COURSE)
     Route: 065
     Dates: start: 2023, end: 202311
  3. PNEUMOCOCCAL VACCINE POLYVALENT [Concomitant]
     Active Substance: PNEUMOCOCCAL VACCINE POLYVALENT
  4. ASPIRIN [Concomitant]
     Active Substance: ASPIRIN
     Dosage: 1 MILLIGRAM, QD
     Route: 065
  5. METHIMAZOLE [Concomitant]
     Active Substance: METHIMAZOLE
     Dosage: 7 MILLIGRAM, QD
     Route: 065
  6. LISINOPRIL [Concomitant]
     Active Substance: LISINOPRIL
     Dosage: 12.5 MILLIGRAM, QD
     Route: 065
  7. NOVOLOG [Concomitant]
     Active Substance: INSULIN ASPART
     Dosage: UNK
  8. VITAMIN C [Concomitant]
     Active Substance: ASCORBIC ACID
     Dosage: 1000 MILLIGRAM, QD
     Route: 065
  9. VITAMIN D3 [Concomitant]
     Active Substance: CHOLECALCIFEROL
     Dosage: UNK, QD
  10. ZINC [Concomitant]
     Active Substance: ZINC
     Dosage: 50 MILLIGRAM, QD
     Route: 065
  11. DIETARY SUPPLEMENT [Concomitant]
     Active Substance: DIETARY SUPPLEMENT
     Dosage: 1200 MILLIGRAM, BID
  12. VITAMINS [Concomitant]
     Active Substance: VITAMINS
     Dosage: 400 IU, QID

REACTIONS (5)
  - Toxic goitre [Unknown]
  - Cataract nuclear [Not Recovered/Not Resolved]
  - Macular degeneration [Unknown]
  - Diarrhoea [Recovered/Resolved]
  - Benign neoplasm of eye [Unknown]

NARRATIVE: CASE EVENT DATE: 20230101
